FAERS Safety Report 5689126-2 (Version None)
Quarter: 2008Q1

REPORT INFORMATION
  Report Type: 
  Country: None (occurrence: None)
  Receive Date: 20080331
  Receipt Date: 20080325
  Transmission Date: 20080703
  Serious: Yes (Other)
  Sender: FDA-Public Use
  Company Number: US-MERCK-0803USA04090

PATIENT
  Age: 85 Year
  Sex: Male

DRUGS (3)
  1. JANUVIA [Suspect]
     Indication: TYPE 2 DIABETES MELLITUS
     Route: 048
     Dates: start: 20071001, end: 20071201
  2. JANUVIA [Suspect]
     Route: 048
     Dates: start: 20071201
  3. GLYBURIDE [Concomitant]
     Route: 065

REACTIONS (1)
  - HEADACHE [None]
